FAERS Safety Report 8222729-X (Version None)
Quarter: 2012Q1

REPORT INFORMATION
  Report Type: 
  Country: None (occurrence: None)
  Receive Date: 20120320
  Receipt Date: 20120316
  Transmission Date: 20120608
  Serious: Yes (Other)
  Sender: FDA-Public Use
  Company Number: US-PFIZER INC-2012070882

PATIENT
  Weight: 50.794 kg

DRUGS (16)
  1. VITAMIN D [Concomitant]
     Dosage: TAKE BY MOUTH DAILY
     Route: 048
  2. DESYREL [Concomitant]
     Dosage: 50 MG, (TAKE BY MOUTH NIGHTLY 25-50 MG: 1/2 TO 1 TABLET TWO HOURS PRIOR TO PLANNED BEDTIME)
     Route: 048
  3. FINGOLIMOD [Concomitant]
     Dosage: 0.5 MG, (TAKE BY MOUTH DAILY)
     Route: 048
  4. FIORICET [Concomitant]
     Indication: HEADACHE
     Dosage: TAKE 1 TABLET BY MOUTH DAILY AS NEEDED
     Route: 048
  5. VITAMIN E [Concomitant]
     Dosage: 400 IU, DAILY
     Route: 048
  6. VISTARIL [Suspect]
     Dosage: 25 MG, AS NEEDED (TAKE 1 TO 2 CAPSULES BY MOUTH EVERY 8 HOURS)
     Route: 048
  7. LUNESTA [Concomitant]
     Dosage: 2 MG, (TAKE BY MOUTH EVERY EVENING)
     Route: 048
  8. MULTIPLE VITAMIN [Concomitant]
     Dosage: (TAKE 1 TABLET BY MOUTH DAILY)
     Route: 048
  9. VITAMIN B COMPLEX CAP [Concomitant]
     Dosage: (TAKE BY MOUTH DAILY)
     Route: 048
  10. ASCORBIC ACID [Concomitant]
     Dosage: 500 MG, (DAILY)
     Route: 048
  11. ESGIC [Suspect]
     Indication: HEADACHE
     Dosage: 1 TABLET DAILY
     Route: 048
  12. PROVIGIL [Concomitant]
     Dosage: 200 MG, 2X/DAY (TAKE 100 MG 2 TIMES DAILY)
     Route: 048
  13. ZANAFLEX [Concomitant]
     Dosage: 2 MG, AS NEEDED (TAKE 1 TABLET BY MOUTH EVERY 6 HOURS)
     Route: 048
  14. PROZAC [Concomitant]
     Dosage: 20 MG, (TAKE 2 CAPSULES BY MOUTH DAILY)
     Route: 048
  15. ZOLOFT [Suspect]
     Dosage: UNK
  16. BACLOFEN [Concomitant]
     Dosage: 20 MG, (TAKE 1 TABLET BY MOUTH)
     Route: 048

REACTIONS (3)
  - WEIGHT INCREASED [None]
  - MULTIPLE SCLEROSIS [None]
  - DEPRESSION [None]
